FAERS Safety Report 13700928 (Version 1)
Quarter: 2017Q2

REPORT INFORMATION
  Report Type: Spontaneous
  Country: AT (occurrence: AT)
  Receive Date: 20170629
  Receipt Date: 20170629
  Transmission Date: 20170830
  Serious: Yes (Other)
  Sender: FDA-Public Use
  Company Number: AT-VIIV HEALTHCARE LIMITED-AT2017GSK098418

PATIENT
  Age: 45 Year
  Sex: Male

DRUGS (2)
  1. TRUVADA [Suspect]
     Active Substance: EMTRICITABINE\TENOFOVIR DISOPROXIL FUMARATE
     Indication: HIV INFECTION
  2. TIVICAY [Suspect]
     Active Substance: DOLUTEGRAVIR SODIUM
     Indication: HIV INFECTION

REACTIONS (4)
  - Pathogen resistance [Unknown]
  - Viral load increased [Recovering/Resolving]
  - Blood HIV RNA increased [Recovering/Resolving]
  - Viral mutation identified [Unknown]
